FAERS Safety Report 13268894 (Version 5)
Quarter: 2017Q3

REPORT INFORMATION
  Report Type: Spontaneous
  Country: KR (occurrence: KR)
  Receive Date: 20170224
  Receipt Date: 20170726
  Transmission Date: 20171127
  Serious: Yes (Hospitalization)
  Sender: FDA-Public Use
  Company Number: KR-009507513-1702KOR009744

PATIENT
  Age: 77 Year
  Sex: Female
  Weight: 49.4 kg

DRUGS (12)
  1. MAGNESIUM OXIDE. [Concomitant]
     Active Substance: MAGNESIUM OXIDE
     Indication: GASTROOESOPHAGEAL REFLUX DISEASE
     Dosage: 1 TABLET, TID
     Route: 048
     Dates: start: 2016
  2. PHAZYME (SIMETHICONE) [Concomitant]
     Indication: DYSPHAGIA
     Dosage: 1 TABLET, STRENGTH: 95 MG, TID
     Route: 048
     Dates: start: 2016, end: 20160408
  3. ALOXI [Concomitant]
     Active Substance: PALONOSETRON HYDROCHLORIDE
     Indication: PREMEDICATION
     Dosage: 5 ML, ONCE
     Route: 042
     Dates: start: 20160331, end: 20160331
  4. GASMOTIN [Concomitant]
     Active Substance: MOSAPRIDE CITRATE
     Indication: DYSPHAGIA
     Dosage: 5 MG, TID
     Route: 048
     Dates: start: 2016
  5. STOGAR [Concomitant]
     Active Substance: LAFUTIDINE
     Indication: GASTROOESOPHAGEAL REFLUX DISEASE
     Dosage: 10 MG, BID
     Route: 048
     Dates: start: 2016, end: 20160408
  6. MOTILIUM [Concomitant]
     Active Substance: DOMPERIDONE
     Indication: PROPHYLAXIS
     Dosage: 10 MG, QD
     Route: 048
     Dates: start: 20160403, end: 20160406
  7. CISPLATIN. [Concomitant]
     Active Substance: CISPLATIN
     Indication: SQUAMOUS CELL CARCINOMA OF THE TONGUE
     Dosage: 80 MG, ONCE,CYCLE 1, STRENGTH: 10MG/20ML
     Route: 042
     Dates: start: 20160331, end: 20160331
  8. TAXOTERE [Concomitant]
     Active Substance: DOCETAXEL
     Indication: SQUAMOUS CELL CARCINOMA OF THE TONGUE
     Dosage: 80 MG, ONCE, CYCLE 1, STRENGTH: 80MG/4ML
     Route: 042
     Dates: start: 20160331, end: 20160331
  9. AIRTAL [Concomitant]
     Active Substance: ACECLOFENAC
     Indication: PERIODONTITIS
     Dosage: 1 TABLET, BID
     Dates: start: 20160322, end: 20160408
  10. DEXAMETHASONE. [Concomitant]
     Active Substance: DEXAMETHASONE
     Indication: PREMEDICATION
     Dosage: 5 MG, ONCE, STRENGTH: 5 MG/ML
     Route: 042
     Dates: start: 20160331, end: 20160331
  11. EMEND (FOSAPREPITANT DIMEGLUMINE) [Suspect]
     Active Substance: FOSAPREPITANT DIMEGLUMINE
     Indication: PROPHYLAXIS OF NAUSEA AND VOMITING
     Dosage: 150 MG, ONCE
     Route: 042
     Dates: start: 20160331, end: 20160331
  12. NYSTATIN. [Concomitant]
     Active Substance: NYSTATIN
     Indication: CANDIDA INFECTION
     Dosage: 6 ML, QID
     Route: 048

REACTIONS (3)
  - Herpes zoster [Recovered/Resolved]
  - Oral pain [Recovering/Resolving]
  - Face oedema [Recovered/Resolved]

NARRATIVE: CASE EVENT DATE: 20160403
